FAERS Safety Report 12776253 (Version 2)
Quarter: 2016Q3

REPORT INFORMATION
  Report Type: Report from Study
  Country: RO (occurrence: RO)
  Receive Date: 20160923
  Receipt Date: 20160929
  Transmission Date: 20161109
  Serious: Yes (Hospitalization)
  Sender: FDA-Public Use
  Company Number: RO-KADMON PHARMACEUTICALS, LLC-KAD201609-003484

PATIENT
  Age: 53 Year
  Sex: Female

DRUGS (11)
  1. RIBAVIRIN. [Suspect]
     Active Substance: RIBAVIRIN
     Indication: HEPATIC CIRRHOSIS
     Dosage: TABLET
     Route: 048
     Dates: start: 20160802, end: 20160912
  2. LORISTA [Concomitant]
     Active Substance: LOSARTAN POTASSIUM
     Indication: HYPERTENSION
     Route: 048
     Dates: start: 2006
  3. VIEKIRAX [Suspect]
     Active Substance: OMBITASVIR\PARITAPREVIR\RITONAVIR
     Indication: HEPATIC CIRRHOSIS
     Dosage: TABLET
     Route: 048
     Dates: start: 20160802, end: 20160913
  4. EXVIERA [Suspect]
     Active Substance: DASABUVIR
     Indication: HEPATIC CIRRHOSIS
     Dosage: TABLET
     Route: 048
     Dates: start: 20160802, end: 20160913
  5. EUTHYROX [Concomitant]
     Active Substance: LEVOTHYROXINE SODIUM
     Indication: HYPOTHYROIDISM
     Route: 048
     Dates: start: 2006
  6. TROMBOSTOP [Concomitant]
     Indication: ANTICOAGULANT THERAPY
     Route: 048
     Dates: start: 1991
  7. CORYOL [Concomitant]
     Active Substance: CARVEDILOL
     Indication: HYPERTENSION
     Route: 048
     Dates: start: 2006
  8. VIEKIRAX [Suspect]
     Active Substance: OMBITASVIR\PARITAPREVIR\RITONAVIR
     Dosage: TABLET
     Route: 048
     Dates: start: 20160918, end: 20160919
  9. EXVIERA [Suspect]
     Active Substance: DASABUVIR
     Dosage: TABLET
     Route: 048
     Dates: start: 20160918, end: 20160919
  10. RIBAVIRIN. [Suspect]
     Active Substance: RIBAVIRIN
     Indication: HEPATITIS C
  11. DIUREX [Concomitant]
     Active Substance: AMILORIDE HYDROCHLORIDE\HYDROCHLOROTHIAZIDE
     Indication: CARDIAC FAILURE CHRONIC
     Route: 048
     Dates: start: 2006, end: 20160915

REACTIONS (12)
  - Discomfort [Unknown]
  - Vomiting [Unknown]
  - Malaise [Recovered/Resolved]
  - Blood pressure increased [Unknown]
  - Insomnia [Unknown]
  - Vertigo [Unknown]
  - Pain [Unknown]
  - Burning sensation [Recovered/Resolved]
  - Diarrhoea [Unknown]
  - Headache [Unknown]
  - Nausea [Unknown]
  - Chest pain [Recovered/Resolved]

NARRATIVE: CASE EVENT DATE: 20160905
